FAERS Safety Report 5465921-X (Version None)
Quarter: 2007Q3

REPORT INFORMATION
  Report Type: 
  Country: None (occurrence: None)
  Receive Date: 20070924
  Receipt Date: 20070913
  Transmission Date: 20080115
  Serious: Yes (Other)
  Sender: FDA-Public Use
  Company Number: JP-JNJFOC-20070900474

PATIENT
  Age: 57 Year
  Sex: Male

DRUGS (10)
  1. RISPERDAL [Suspect]
     Route: 048
  2. RISPERDAL [Suspect]
     Route: 048
  3. RISPERDAL [Suspect]
     Route: 048
  4. RISPERDAL [Suspect]
     Indication: SCHIZOPHRENIA
     Route: 048
  5. DEPAKENE [Concomitant]
     Indication: SCHIZOPHRENIA
  6. RISUMIC [Concomitant]
     Indication: ORTHOSTATIC HYPOTENSION
  7. ETICALM [Concomitant]
     Indication: INSOMNIA
  8. CHLORPROMAZINE HCL [Concomitant]
     Indication: SCHIZOPHRENIA
  9. NELBON [Concomitant]
     Indication: INSOMNIA
  10. SEROQUEL [Concomitant]
     Indication: SCHIZOPHRENIA

REACTIONS (1)
  - ANAEMIA [None]
